FAERS Safety Report 21653390 (Version 1)
Quarter: 2022Q4

REPORT INFORMATION
  Report Type: Report from Study
  Country: US (occurrence: US)
  Receive Date: 20221128
  Receipt Date: 20221128
  Transmission Date: 20230113
  Serious: No
  Sender: FDA-Public Use
  Company Number: US-ABBVIE-4171954

PATIENT
  Sex: Female

DRUGS (4)
  1. HUMIRA [Suspect]
     Active Substance: ADALIMUMAB
     Indication: Rheumatoid arthritis
     Route: 058
  2. HUMIRA [Suspect]
     Active Substance: ADALIMUMAB
     Route: 058
  3. Johnson + Johnson covid-19 vaccine [Concomitant]
     Indication: COVID-19 immunisation
     Dosage: ONCE
     Route: 030
  4. OZEMPIC [Suspect]
     Active Substance: SEMAGLUTIDE
     Indication: Product used for unknown indication
     Route: 065

REACTIONS (4)
  - Device physical property issue [Recovered/Resolved]
  - Inflammation [Unknown]
  - Blood glucose increased [Recovered/Resolved]
  - Weight decreased [Recovered/Resolved]
